FAERS Safety Report 25425596 (Version 1)
Quarter: 2025Q2

REPORT INFORMATION
  Report Type: Spontaneous
  Country: ES (occurrence: ES)
  Receive Date: 20250611
  Receipt Date: 20250611
  Transmission Date: 20250716
  Serious: Yes (Hospitalization)
  Sender: BEIGENE
  Company Number: ES-BEIGENE-BGN-2025-009037

PATIENT
  Age: 78 Year

DRUGS (1)
  1. BRUKINSA [Suspect]
     Active Substance: ZANUBRUTINIB
     Indication: Blood immunoglobulin M increased

REACTIONS (2)
  - Ischaemic stroke [Unknown]
  - Haemorrhagic transformation stroke [Unknown]
